FAERS Safety Report 5276143-X (Version None)
Quarter: 2007Q1

REPORT INFORMATION
  Report Type: 
  Country: None (occurrence: None)
  Receive Date: 20070326
  Receipt Date: 20061127
  Transmission Date: 20070707
  Serious: Yes (Hospitalization)
  Sender: FDA-Public Use
  Company Number: BE-JNJFOC-20061000428

PATIENT
  Sex: Male

DRUGS (4)
  1. TMC114 [Suspect]
     Route: 048
  2. TMC114 [Suspect]
     Indication: HIV INFECTION
     Route: 048
  3. COMBIVIR [Concomitant]
     Indication: HIV INFECTION
     Route: 048
  4. VIREAD [Concomitant]
     Indication: HIV INFECTION
     Route: 048

REACTIONS (2)
  - PYREXIA [None]
  - THROMBOCYTOPENIA [None]
